FAERS Safety Report 21405923 (Version 1)
Quarter: 2022Q4

REPORT INFORMATION
  Report Type: Spontaneous
  Country: FR (occurrence: FR)
  Receive Date: 20221004
  Receipt Date: 20221004
  Transmission Date: 20230113
  Serious: Yes (Other)
  Sender: FDA-Public Use
  Company Number: FR-PFIZER INC-202201166286

PATIENT
  Age: 52 Year

DRUGS (5)
  1. PREDNISONE [Suspect]
     Active Substance: PREDNISONE
     Indication: B-cell lymphoma
     Dosage: 4 CYCLICAL (4 CYCLES )
     Route: 065
     Dates: start: 20210803
  2. VINCRISTINE SULFATE [Suspect]
     Active Substance: VINCRISTINE SULFATE
     Indication: B-cell lymphoma
     Dosage: 4 CYCLICAL
     Route: 065
     Dates: start: 20210803
  3. DOXORUBICIN HYDROCHLORIDE [Suspect]
     Active Substance: DOXORUBICIN HYDROCHLORIDE
     Indication: B-cell lymphoma
     Dosage: 4 CYCLICAL (4 CYCLES )
     Route: 065
     Dates: start: 20210803
  4. CYCLOPHOSPHAMIDE [Suspect]
     Active Substance: CYCLOPHOSPHAMIDE
     Indication: B-cell lymphoma
     Dosage: 4 CYCLICAL (4 CYCLES )
     Route: 065
     Dates: start: 20210803
  5. ETOPOSIDE [Suspect]
     Active Substance: ETOPOSIDE
     Indication: B-cell lymphoma
     Dosage: 4 CYCLICAL (4 CYCLES )
     Route: 065
     Dates: start: 20210803

REACTIONS (5)
  - Febrile bone marrow aplasia [Unknown]
  - Neuropathy peripheral [Unknown]
  - Mucosal inflammation [Unknown]
  - Malnutrition [Unknown]
  - Weight decreased [Unknown]
